FAERS Safety Report 19839573 (Version 1)
Quarter: 2021Q3

REPORT INFORMATION
  Report Type: Spontaneous
  Country: BE (occurrence: BE)
  Receive Date: 20210915
  Receipt Date: 20210915
  Transmission Date: 20211014
  Serious: Yes (Other)
  Sender: FDA-Public Use
  Company Number: BE-LUPIN PHARMACEUTICALS INC.-2021-17022

PATIENT
  Age: 76 Year
  Sex: Male

DRUGS (13)
  1. LEFLUNOMIDE. [Suspect]
     Active Substance: LEFLUNOMIDE
     Indication: AUTOINFLAMMATORY DISEASE
     Dosage: UNK
     Route: 065
  2. INFLIXIMAB [Suspect]
     Active Substance: INFLIXIMAB
     Indication: AUTOINFLAMMATORY DISEASE
     Dosage: UNK
     Route: 065
  3. COLCHICINE. [Suspect]
     Active Substance: COLCHICINE
     Indication: AUTOINFLAMMATORY DISEASE
     Dosage: UNK
     Route: 065
  4. METHOTREXATE. [Suspect]
     Active Substance: METHOTREXATE
     Indication: AUTOINFLAMMATORY DISEASE
     Dosage: 15 MILLIGRAM WEEKLY
     Route: 065
  5. METHOTREXATE. [Suspect]
     Active Substance: METHOTREXATE
     Indication: X-LINKED CHROMOSOMAL DISORDER
  6. ANAKINRA [Suspect]
     Active Substance: ANAKINRA
     Indication: AUTOINFLAMMATORY DISEASE
     Dosage: 100 MILLIGRAM, QD
     Route: 058
  7. PREDNISOLONE. [Concomitant]
     Active Substance: PREDNISOLONE
     Indication: AUTOINFLAMMATORY DISEASE
     Dosage: 10 MILLIGRAM
     Route: 065
  8. INFLIXIMAB [Suspect]
     Active Substance: INFLIXIMAB
     Indication: X-LINKED CHROMOSOMAL DISORDER
  9. ANAKINRA [Suspect]
     Active Substance: ANAKINRA
     Indication: X-LINKED CHROMOSOMAL DISORDER
  10. PREDNISOLONE. [Concomitant]
     Active Substance: PREDNISOLONE
     Indication: X-LINKED CHROMOSOMAL DISORDER
     Dosage: 7.5 MILLIGRAM
     Route: 065
  11. INDOMETHACIN. [Concomitant]
     Active Substance: INDOMETHACIN
     Indication: EPISCLERITIS
     Dosage: UNK
     Route: 061
  12. LEFLUNOMIDE. [Suspect]
     Active Substance: LEFLUNOMIDE
     Indication: X-LINKED CHROMOSOMAL DISORDER
  13. COLCHICINE. [Suspect]
     Active Substance: COLCHICINE
     Indication: X-LINKED CHROMOSOMAL DISORDER

REACTIONS (2)
  - Off label use [None]
  - Drug ineffective [Unknown]
